FAERS Safety Report 9282325 (Version 3)
Quarter: 2013Q4

REPORT INFORMATION
  Report Type: Spontaneous
  Country: US (occurrence: US)
  Receive Date: 20130510
  Receipt Date: 20131108
  Transmission Date: 20140711
  Serious: Yes (Hospitalization, Other)
  Sender: FDA-Public Use
  Company Number: US-BAYER-2013-057892

PATIENT
  Age: 21 Year
  Sex: Female
  Weight: 54.42 kg

DRUGS (2)
  1. MIRENA [Suspect]
     Indication: CONTRACEPTION
     Dosage: 20 MCG/24HR, CONT
     Route: 015
     Dates: start: 20101230, end: 20110513
  2. SPRINTEC [Concomitant]

REACTIONS (8)
  - Genital haemorrhage [None]
  - Uterine perforation [None]
  - Device issue [None]
  - Injury [None]
  - Depression [None]
  - Anxiety [None]
  - Libido decreased [None]
  - Menorrhagia [None]
